FAERS Safety Report 4358141-3 (Version None)
Quarter: 2004Q2

REPORT INFORMATION
  Report Type: 
  Country: None (occurrence: None)
  Receive Date: 20040513
  Receipt Date: 20040513
  Transmission Date: 20050107
  Serious: Yes (Hospitalization)
  Sender: FDA-Public Use
  Company Number: None

PATIENT
  Age: 26 Year
  Sex: Female

DRUGS (1)
  1. TOPIRAMATE [Suspect]
     Indication: HEADACHE
     Dosage: 50 MG QAM ORAL, 75 MG QPM ORAL
     Route: 048
     Dates: start: 20040213, end: 20040305

REACTIONS (1)
  - LEUKOPENIA [None]
